FAERS Safety Report 14878998 (Version 1)
Quarter: 2018Q2

REPORT INFORMATION
  Report Type: Spontaneous
  Country: JP (occurrence: JP)
  Receive Date: 20180511
  Receipt Date: 20180511
  Transmission Date: 20180711
  Serious: Yes (Life-Threatening, Other)
  Sender: FDA-Public Use
  Company Number: JP-ACCORD-066780

PATIENT
  Age: 63 Year
  Sex: Male

DRUGS (3)
  1. CISPLATIN. [Suspect]
     Active Substance: CISPLATIN
     Indication: SQUAMOUS CELL CARCINOMA
     Dosage: SLOW BOLUS OVER 1 H THROUGH THE INTRA-ARTERIAL CATHETER
     Route: 013
  2. DOCETAXEL. [Suspect]
     Active Substance: DOCETAXEL
     Indication: SQUAMOUS CELL CARCINOMA
     Dosage: SLOW BOLUS OVER 1 H THROUGH THE INTRA-ARTERIAL CATHETER
     Route: 013
  3. CETUXIMAB. [Suspect]
     Active Substance: CETUXIMAB
     Indication: SQUAMOUS CELL CARCINOMA
     Dosage: INITIAL DOSE, 400 MG/ M^2, WITH SUBSEQUENT WEEKLY DOSES OF 250 MG/M^2 VIA INTRAVENOUS INFUSION
     Route: 041

REACTIONS (5)
  - Dermatitis [Unknown]
  - Neutropenia [Unknown]
  - Dermatitis acneiform [Unknown]
  - Stomatitis [Unknown]
  - Paronychia [Unknown]
